FAERS Safety Report 4499465-9 (Version None)
Quarter: 2004Q4

REPORT INFORMATION
  Report Type: 
  Country: None (occurrence: None)
  Receive Date: 20040928
  Receipt Date: 20040706
  Transmission Date: 20050328
  Serious: No
  Sender: FDA-Public Use
  Company Number: 04P-163-0265877-00

PATIENT
  Age: 57 Year
  Sex: Female
  Weight: 83.9154 kg

DRUGS (7)
  1. HUMIRA [Suspect]
     Indication: RHEUMATOID ARTHRITIS
     Dosage: 40 MG, 1 IN 2 WK, SUBCUTANEOUS
     Route: 058
     Dates: start: 20030301
  2. LEFLUNOMIDE [Concomitant]
  3. BUCINDOLOL HYDROCHLORIDE [Concomitant]
  4. GLIMEPIRIDE [Concomitant]
  5. ALPRAZOLAM [Concomitant]
  6. ATORVASTATIN CALCIUM [Concomitant]
  7. NIFEDIPINE [Concomitant]

REACTIONS (1)
  - RASH [None]
